FAERS Safety Report 11329715 (Version 1)
Quarter: 2015Q3

REPORT INFORMATION
  Report Type: Spontaneous
  Country: US (occurrence: US)
  Receive Date: 20150803
  Receipt Date: 20150803
  Transmission Date: 20151125
  Serious: Yes (Hospitalization)
  Sender: FDA-Public Use
  Company Number: US-JNJFOC-20150721231

PATIENT
  Sex: Male

DRUGS (1)
  1. INVOKANA [Suspect]
     Active Substance: CANAGLIFLOZIN
     Indication: LATENT AUTOIMMUNE DIABETES IN ADULTS
     Route: 048

REACTIONS (3)
  - Diabetic ketoacidosis [Recovered/Resolved]
  - Product use issue [Unknown]
  - Unresponsive to stimuli [Recovered/Resolved]

NARRATIVE: CASE EVENT DATE: 2014
